FAERS Safety Report 8516921-4 (Version None)
Quarter: 2012Q3

REPORT INFORMATION
  Report Type: 
  Country: None (occurrence: None)
  Receive Date: 20120706
  Receipt Date: 20120427
  Transmission Date: 20120928
  Serious: Yes (Hospitalization)
  Sender: FDA-Public Use
  Company Number: 2012MA008051

PATIENT
  Age: 42 Year
  Sex: Female

DRUGS (1)
  1. ALPRAZOLAM [Suspect]
     Indication: INTENTIONAL SELF-INJURY
     Dosage: 10 MG; X1; PO
     Route: 048
     Dates: start: 20120423, end: 20120423

REACTIONS (3)
  - BRADYKINESIA [None]
  - BRADYPHRENIA [None]
  - INTENTIONAL OVERDOSE [None]
